FAERS Safety Report 9510023 (Version 1)
Quarter: 2013Q3

REPORT INFORMATION
  Report Type: Spontaneous
  Country: US (occurrence: US)
  Receive Date: 20130909
  Receipt Date: 20130909
  Transmission Date: 20140515
  Serious: No
  Sender: FDA-Public Use
  Company Number: US-BRISTOL-MYERS SQUIBB COMPANY-18858076

PATIENT
  Age: 66 Year
  Sex: Female
  Weight: 86.17 kg

DRUGS (1)
  1. ABILIFY [Suspect]
     Indication: MAJOR DEPRESSION
     Dosage: INITIALLY 10 MG AND THEN REDUCED TO 5MG ,THEN TO 2MG
     Dates: start: 2012

REACTIONS (2)
  - Glycosylated haemoglobin increased [Unknown]
  - Weight increased [Unknown]
